FAERS Safety Report 9736679 (Version 2)
Quarter: 2013Q4

REPORT INFORMATION
  Report Type: Spontaneous
  Country: US (occurrence: US)
  Receive Date: 20131206
  Receipt Date: 20131206
  Transmission Date: 20140711
  Serious: No
  Sender: FDA-Public Use
  Company Number: US-GILEAD-2009-0023212

PATIENT
  Sex: Female

DRUGS (10)
  1. LETAIRIS [Suspect]
     Indication: PULMONARY ARTERIAL HYPERTENSION
     Route: 048
     Dates: start: 20090530
  2. IMURAN [Concomitant]
  3. AVANDAMENT [Concomitant]
  4. GLUCOTROL [Concomitant]
  5. SYNTHROID [Concomitant]
  6. PRILOSEC [Concomitant]
  7. ADVIL [Concomitant]
  8. ASPIRIN [Concomitant]
  9. MULTIVITAMINS [Concomitant]
  10. VITAMIN B-12 [Concomitant]

REACTIONS (2)
  - Vision blurred [Unknown]
  - Renal pain [Unknown]
